FAERS Safety Report 4341398-2 (Version None)
Quarter: 2004Q2

REPORT INFORMATION
  Report Type: 
  Country: None (occurrence: None)
  Receive Date: 20040413
  Receipt Date: 20040401
  Transmission Date: 20050107
  Serious: Yes (Life-Threatening)
  Sender: FDA-Public Use
  Company Number: HQWYE327301APR04

PATIENT
  Age: 71 Year
  Sex: Male

DRUGS (12)
  1. AMIODARONE HCL [Suspect]
     Indication: VENTRICULAR TACHYCARDIA
     Dosage: 200 MG 1 X PER 1 DAY
     Route: 048
     Dates: start: 20031218, end: 20040131
  2. ISOSORBIDE MONONITRATE [Concomitant]
  3. WARFARIN SODIUM [Concomitant]
  4. LANIRAPID (METILDIGOXIN) [Concomitant]
  5. LASIX [Concomitant]
  6. ALDACTONE [Concomitant]
  7. DISOPYRAMIDE [Concomitant]
  8. URSO [Concomitant]
  9. COSPANON (FLOPROPIONE) [Concomitant]
  10. LENDORM [Concomitant]
  11. ZOLPIDEM TARTRATE [Concomitant]
  12. PURSENNID (SENNA LEAF) [Concomitant]

REACTIONS (1)
  - INTERSTITIAL LUNG DISEASE [None]
